FAERS Safety Report 22180226 (Version 4)
Quarter: 2024Q4

REPORT INFORMATION
  Report Type: Report from Study
  Country: US (occurrence: US)
  Receive Date: 20230406
  Receipt Date: 20241216
  Transmission Date: 20250115
  Serious: Yes (Other)
  Sender: UCB
  Company Number: US-UCBSA-2023017344

PATIENT
  Age: 21 Year
  Sex: Male
  Weight: 47.5 kg

DRUGS (4)
  1. FINTEPLA [Suspect]
     Active Substance: FENFLURAMINE
     Indication: Seizure
     Dosage: 6.8 MILLILITER, 2X/DAY (BID)
  2. FINTEPLA [Suspect]
     Active Substance: FENFLURAMINE
     Indication: Severe myoclonic epilepsy of infancy
     Dosage: 7.8 MILLILITER, 2X/DAY (BID)
     Dates: start: 20201106
  3. FINTEPLA [Suspect]
     Active Substance: FENFLURAMINE
     Dosage: 7.8 MILLILITER, 2X/DAY (BID)
     Dates: start: 20210326
  4. TOPAMAX [Concomitant]
     Active Substance: TOPIRAMATE
     Indication: Blepharospasm
     Dosage: 100 MILLIGRAM, 2X/DAY (BID)

REACTIONS (7)
  - Seizure [Not Recovered/Not Resolved]
  - Blepharospasm [Not Recovered/Not Resolved]
  - Fall [Not Recovered/Not Resolved]
  - Skin laceration [Not Recovered/Not Resolved]
  - Drug ineffective [Unknown]
  - Off label use [Unknown]
  - Overdose [Unknown]

NARRATIVE: CASE EVENT DATE: 20230301
